FAERS Safety Report 24869411 (Version 1)
Quarter: 2025Q1

REPORT INFORMATION
  Report Type: Spontaneous
  Country: US (occurrence: None)
  Receive Date: 20250119
  Receipt Date: 20250119
  Transmission Date: 20250408
  Serious: Yes (Disabling, Other)
  Sender: FDA-CTU
  Company Number: None

PATIENT
  Age: 59 Year
  Sex: Female
  Weight: 56.25 kg

DRUGS (5)
  1. FLUOXETINE HYDROCHLORIDE [Suspect]
     Active Substance: FLUOXETINE HYDROCHLORIDE
     Indication: Major depression
     Dates: start: 20190403, end: 20230905
  2. WELLBUTRIN [Suspect]
     Active Substance: BUPROPION HYDROCHLORIDE
  3. MIRTAZAPINE [Suspect]
     Active Substance: MIRTAZAPINE
  4. Nature thyroid HRT [Concomitant]
  5. VITAMINS [Concomitant]
     Active Substance: VITAMINS

REACTIONS (14)
  - Sexual dysfunction [None]
  - Near death experience [None]
  - Decreased appetite [None]
  - Loss of libido [None]
  - Emotional poverty [None]
  - Bladder disorder [None]
  - Neuropathy peripheral [None]
  - Asthenia [None]
  - Pain [None]
  - Cognitive disorder [None]
  - Anhedonia [None]
  - Social problem [None]
  - Emotional poverty [None]
  - Feeling of despair [None]

NARRATIVE: CASE EVENT DATE: 20230707
